FAERS Safety Report 12359732 (Version 1)
Quarter: 2016Q2

REPORT INFORMATION
  Report Type: Spontaneous
  Country: US (occurrence: None)
  Receive Date: 20160511
  Receipt Date: 20160511
  Transmission Date: 20160815
  Serious: Yes (Other)
  Sender: FDA-Public Use
  Company Number: None

PATIENT
  Sex: Male
  Weight: 149.23 kg

DRUGS (1)
  1. DULOXETINE 60MG  TEVA [Suspect]
     Active Substance: DULOXETINE
     Indication: DEPRESSION
     Route: 048
     Dates: start: 20141023, end: 20151021

REACTIONS (3)
  - Abdominal discomfort [None]
  - Drug effect incomplete [None]
  - Nausea [None]
